FAERS Safety Report 6431479-1 (Version None)
Quarter: 2009Q4

REPORT INFORMATION
  Report Type: 
  Country: None (occurrence: None)
  Receive Date: 20091106
  Receipt Date: 20091029
  Transmission Date: 20100525
  Serious: Yes (Hospitalization, Other)
  Sender: FDA-Public Use
  Company Number: US-ABBOTT-09P-163-0605731-00

PATIENT
  Sex: Female
  Weight: 79.45 kg

DRUGS (7)
  1. HUMIRA [Suspect]
     Indication: PSORIASIS
     Route: 058
     Dates: start: 20081101, end: 20090601
  2. SIMVASTATIN [Suspect]
     Indication: BLOOD CHOLESTEROL INCREASED
     Dates: start: 20080101, end: 20090701
  3. METFORMIN [Concomitant]
     Indication: DIABETES MELLITUS
     Dosage: DAILY
     Dates: end: 20091001
  4. METOPROLOL [Concomitant]
     Indication: HYPERTENSION
     Dosage: DAILY
     Dates: end: 20090601
  5. METOPROLOL [Concomitant]
     Dosage: UNKNOWN
     Dates: start: 20090601
  6. HYDROCHLOROTHIAZIDE [Concomitant]
     Indication: HYPERTENSION
     Dosage: DAILY
     Dates: end: 20090601
  7. HYDROCHLOROTHIAZIDE [Concomitant]
     Dates: start: 20090601

REACTIONS (6)
  - BLOOD GLUCOSE INCREASED [None]
  - DEHYDRATION [None]
  - FATIGUE [None]
  - HEPATIC FUNCTION ABNORMAL [None]
  - MUSCULAR WEAKNESS [None]
  - RENAL IMPAIRMENT [None]
